FAERS Safety Report 17568718 (Version 2)
Quarter: 2020Q1

REPORT INFORMATION
  Report Type: Spontaneous
  Country: US (occurrence: US)
  Receive Date: 20200321
  Receipt Date: 20200324
  Transmission Date: 20200409
  Serious: No
  Sender: FDA-Public Use
  Company Number: US-IPSEN BIOPHARMACEUTICALS, INC.-2020-05651

PATIENT
  Age: 44 Year
  Sex: Male

DRUGS (11)
  1. ASTEPRO [Concomitant]
     Active Substance: AZELASTINE HYDROCHLORIDE
  2. NAPROXEN. [Concomitant]
     Active Substance: NAPROXEN
  3. SOMATULINE DEPOT [Suspect]
     Active Substance: LANREOTIDE ACETATE
     Indication: ACROMEGALY
     Route: 058
     Dates: start: 20150623
  4. PREDNISONE. [Concomitant]
     Active Substance: PREDNISONE
  5. RESTASIS [Concomitant]
     Active Substance: CYCLOSPORINE
  6. LANTUS [Concomitant]
     Active Substance: INSULIN GLARGINE
  7. FLUTICASONE. [Concomitant]
     Active Substance: FLUTICASONE
  8. LOSARTAN POTASSIUM. [Concomitant]
     Active Substance: LOSARTAN POTASSIUM
  9. METFORMIN [Concomitant]
     Active Substance: METFORMIN HYDROCHLORIDE
  10. LEVEMIR [Concomitant]
     Active Substance: INSULIN DETEMIR
  11. ANDROGEL [Concomitant]
     Active Substance: TESTOSTERONE

REACTIONS (1)
  - Insulin-like growth factor increased [Unknown]
